FAERS Safety Report 22782152 (Version 4)
Quarter: 2024Q3

REPORT INFORMATION
  Report Type: Report from Study
  Country: US (occurrence: US)
  Receive Date: 20230803
  Receipt Date: 20240805
  Transmission Date: 20241016
  Serious: Yes (Hospitalization)
  Sender: BAUSCH AND LOMB
  Company Number: US-BAUSCH-BL-2023-011765

PATIENT
  Age: 37 Year
  Sex: Male

DRUGS (1)
  1. SYPRINE [Suspect]
     Active Substance: TRIENTINE HYDROCHLORIDE
     Indication: Hepato-lenticular degeneration
     Route: 048
     Dates: end: 202401

REACTIONS (3)
  - Hospitalisation [Unknown]
  - Insurance issue [Unknown]
  - Therapy interrupted [Unknown]

NARRATIVE: CASE EVENT DATE: 20240101
